FAERS Safety Report 5357729-0 (Version None)
Quarter: 2007Q2

REPORT INFORMATION
  Report Type: 
  Country: None (occurrence: None)
  Receive Date: 20070614
  Receipt Date: 20070607
  Transmission Date: 20071010
  Serious: Yes (Disabling)
  Sender: FDA-Public Use
  Company Number: GB-BOEHRINGER INGELHEIM PHARMACEUTICALS, INC.-2007-UK-01879UK

PATIENT
  Sex: Female
  Weight: 84 kg

DRUGS (3)
  1. PRAMIPEXOLE DIHYDROCHLORIDE [Suspect]
     Indication: RESTLESS LEGS SYNDROME
     Dosage: 88MCG
     Route: 048
     Dates: start: 20060901, end: 20070423
  2. CALCICHEW D3 [Concomitant]
     Indication: OSTEOPOROSIS
     Route: 048
  3. RISEDRONATE SODIUM [Concomitant]
     Indication: OSTEOPOROSIS
     Dosage: 35MG
     Route: 048

REACTIONS (2)
  - HYPOMANIA [None]
  - THINKING ABNORMAL [None]
